FAERS Safety Report 9160014 (Version 4)
Quarter: 2013Q2

REPORT INFORMATION
  Report Type: Spontaneous
  Country: JP (occurrence: JP)
  Receive Date: 20130313
  Receipt Date: 20130521
  Transmission Date: 20140414
  Serious: Yes (Other)
  Sender: FDA-Public Use
  Company Number: JP-ELI_LILLY_AND_COMPANY-JP201303002078

PATIENT
  Age: 56 Year
  Sex: Female

DRUGS (7)
  1. ALIMTA [Suspect]
     Indication: LUNG NEOPLASM MALIGNANT
     Dosage: 650 MG, UNK
     Route: 042
     Dates: start: 20130306
  2. PANVITAN [Concomitant]
     Dosage: 1 G, UNK
     Route: 048
     Dates: start: 20130222
  3. VITAMEDIN [Concomitant]
  4. METHYCOBAL [Concomitant]
     Dosage: 1000 UG, UNK
     Route: 030
     Dates: start: 20130222
  5. DEXART [Concomitant]
     Dosage: 6.6 MG, UNK
     Route: 042
     Dates: start: 20130306
  6. ALOXI [Concomitant]
     Dosage: 0.75 MG, UNK
     Route: 042
     Dates: start: 20130306
  7. EMEND [Concomitant]
     Dosage: 125 MG, UNK
     Route: 048
     Dates: start: 20130306

REACTIONS (1)
  - Epilepsy [Recovered/Resolved]
